FAERS Safety Report 10541016 (Version 5)
Quarter: 2015Q3

REPORT INFORMATION
  Report Type: Report from Study
  Country: US (occurrence: US)
  Receive Date: 20141024
  Receipt Date: 20150728
  Transmission Date: 20151125
  Serious: Yes (Other)
  Sender: FDA-Public Use
  Company Number: US-SA-2014SA080213

PATIENT
  Age: 53 Year
  Sex: Female

DRUGS (5)
  1. AVONEX [Concomitant]
     Active Substance: INTERFERON BETA-1A
     Indication: MULTIPLE SCLEROSIS
     Dates: start: 20120701, end: 20140413
  2. AUBAGIO [Suspect]
     Active Substance: TERIFLUNOMIDE
     Indication: MULTIPLE SCLEROSIS
     Dosage: DOSE: 7MG TO 14MG
     Route: 048
     Dates: start: 20140414, end: 20140512
  3. AUBAGIO [Suspect]
     Active Substance: TERIFLUNOMIDE
     Indication: MULTIPLE SCLEROSIS
     Dosage: DOSE: 7MG TO 14MG
     Route: 048
     Dates: start: 20140513, end: 20150713
  4. BACLOFEN. [Concomitant]
     Active Substance: BACLOFEN
     Indication: MUSCLE SPASMS
  5. PANTOPRAZOLE [Concomitant]
     Active Substance: PANTOPRAZOLE SODIUM
     Indication: ABDOMINAL DISCOMFORT

REACTIONS (17)
  - Frequent bowel movements [Unknown]
  - Liver disorder [Unknown]
  - Gait disturbance [Unknown]
  - Blood cholesterol increased [Unknown]
  - Lacrimation increased [Unknown]
  - Malaise [Unknown]
  - Sneezing [Unknown]
  - Joint injury [Unknown]
  - Contusion [Unknown]
  - Cyst [Unknown]
  - Sunburn [Unknown]
  - Pain in extremity [Unknown]
  - Arthralgia [Unknown]
  - Joint effusion [Unknown]
  - Depression [Unknown]
  - Rhinorrhoea [Unknown]
  - Hepatic enzyme increased [Unknown]

NARRATIVE: CASE EVENT DATE: 2014
